FAERS Safety Report 18100704 (Version 4)
Quarter: 2020Q4

REPORT INFORMATION
  Report Type: Report from Study
  Country: CA (occurrence: CA)
  Receive Date: 20200731
  Receipt Date: 20201013
  Transmission Date: 20210113
  Serious: Yes (Other)
  Sender: FDA-Public Use
  Company Number: CA-JNJFOC-20200736630

PATIENT
  Age: 44 Year
  Sex: Male

DRUGS (2)
  1. REMICADE [Suspect]
     Active Substance: INFLIXIMAB
     Dosage: SECOND INFUSION WAS ON 25-JUN-2020.
     Route: 042
     Dates: end: 20200723
  2. REMICADE [Suspect]
     Active Substance: INFLIXIMAB
     Indication: CROHN^S DISEASE
     Dosage: 5 MG/KG?ON 23-JUL-2020, PATIENT RECEIVED 3RD INFUSION AT 20 CC PER HOUR
     Route: 042
     Dates: start: 20200611

REACTIONS (12)
  - Flushing [Recovering/Resolving]
  - Infusion related reaction [Recovering/Resolving]
  - Headache [Not Recovered/Not Resolved]
  - Product use issue [Unknown]
  - Chest discomfort [Recovering/Resolving]
  - Malaise [Not Recovered/Not Resolved]
  - Arthralgia [Not Recovered/Not Resolved]
  - Pyrexia [Not Recovered/Not Resolved]
  - Joint swelling [Unknown]
  - Off label use [Unknown]
  - Anxiety [Recovering/Resolving]
  - Hypersensitivity [Recovering/Resolving]

NARRATIVE: CASE EVENT DATE: 2020
